FAERS Safety Report 15238633 (Version 25)
Quarter: 2020Q1

REPORT INFORMATION
  Report Type: Report from Study
  Country: CO (occurrence: CO)
  Receive Date: 20180803
  Receipt Date: 20200304
  Transmission Date: 20200409
  Serious: Yes (Hospitalization, Other)
  Sender: FDA-Public Use
  Company Number: CO-SA-2018SA141665

PATIENT
  Age: 45 Year
  Sex: Female

DRUGS (3)
  1. EUTIROX [Concomitant]
     Active Substance: LEVOTHYROXINE SODIUM
     Indication: HYPOTHYROIDISM
     Dosage: 100 UG, QD
     Route: 048
  2. WINADEINE [Concomitant]
     Dosage: UNK, UNK
     Route: 065
  3. ALEMTUZUMAB [Suspect]
     Active Substance: ALEMTUZUMAB
     Indication: MULTIPLE SCLEROSIS
     Dosage: 12 MG, QD
     Route: 041
     Dates: start: 20180516, end: 20180518

REACTIONS (35)
  - Cough [Recovered/Resolved]
  - Dyspnoea [Recovered/Resolved]
  - Vision blurred [Recovered/Resolved]
  - Paraesthesia [Recovered/Resolved]
  - Asthenia [Recovered/Resolved]
  - Lymphocyte count decreased [Not Recovered/Not Resolved]
  - Altered state of consciousness [Recovered/Resolved]
  - Platelet count increased [Recovered/Resolved]
  - Headache [Recovered/Resolved]
  - Pelvic pain [Recovered/Resolved]
  - Muscular weakness [Unknown]
  - Pyrexia [Recovered/Resolved]
  - Laryngitis [Recovered/Resolved]
  - Leukocyturia [Recovered/Resolved]
  - Bacteriuria [Recovered/Resolved]
  - Dysuria [Not Recovered/Not Resolved]
  - Blood thyroid stimulating hormone decreased [Recovered/Resolved]
  - Leukocyturia [Not Recovered/Not Resolved]
  - Dermatitis allergic [Not Recovered/Not Resolved]
  - Urinary tract infection [Recovered/Resolved]
  - Oropharyngeal pain [Recovered/Resolved]
  - Nitrite urine present [Recovered/Resolved]
  - Hyperhidrosis [Recovered/Resolved]
  - White blood cell count decreased [Recovered/Resolved]
  - Blood creatinine decreased [Recovered/Resolved]
  - Crystal urine present [Recovered/Resolved]
  - Red blood cells urine positive [Recovered/Resolved]
  - Urodynamics measurement abnormal [Unknown]
  - Urinary tract infection bacterial [Recovered/Resolved]
  - Neurogenic bladder [Not Recovered/Not Resolved]
  - Feeling abnormal [Recovered/Resolved]
  - Vertigo [Recovered/Resolved]
  - Posture abnormal [Recovered/Resolved]
  - Bronchitis [Recovered/Resolved]
  - Nausea [Recovered/Resolved]

NARRATIVE: CASE EVENT DATE: 201805
